FAERS Safety Report 15872268 (Version 2)
Quarter: 2020Q1

REPORT INFORMATION
  Report Type: Other
  Country: US (occurrence: US)
  Receive Date: 20190126
  Receipt Date: 20200126
  Transmission Date: 20200409
  Serious: No
  Sender: FDA-Public Use
  Company Number: US-ACORDA-ACO_147789_2018

PATIENT
  Age: 49 Year
  Sex: Female

DRUGS (13)
  1. AMPYRA [Suspect]
     Active Substance: DALFAMPRIDINE
     Dosage: 10 MG, EVERY 12 HRS
     Route: 048
     Dates: start: 201608
  2. ALEVE [Concomitant]
     Active Substance: NAPROXEN SODIUM
     Indication: PRODUCT USED FOR UNKNOWN INDICATION
     Dosage: UNK
     Route: 065
  3. TYSABRI [Suspect]
     Active Substance: NATALIZUMAB
     Indication: MULTIPLE SCLEROSIS
     Dosage: 15 MG/ML,1 FOR 4 WEEK
     Route: 042
     Dates: start: 201609
  4. TYSABRI [Suspect]
     Active Substance: NATALIZUMAB
     Dosage: 15 MG/ML 1 FOR 1 MONTH
     Route: 042
  5. REBIF [Concomitant]
     Active Substance: INTERFERON BETA-1A
     Indication: PRODUCT USED FOR UNKNOWN INDICATION
     Dosage: UNK
     Route: 065
  6. AMPYRA [Suspect]
     Active Substance: DALFAMPRIDINE
     Indication: MULTIPLE SCLEROSIS
     Dosage: 10 MG, Q 12 HRS
     Route: 048
     Dates: start: 20160804
  7. TIZANIDINE. [Concomitant]
     Active Substance: TIZANIDINE
     Indication: PRODUCT USED FOR UNKNOWN INDICATION
     Dosage: UNK
     Route: 065
  8. TYSABRI [Suspect]
     Active Substance: NATALIZUMAB
     Dosage: CONCENTRATE FOR SOLUTION FOR INFUSION
     Route: 042
     Dates: start: 20160914
  9. TYSABRI [Suspect]
     Active Substance: NATALIZUMAB
     Dosage: 1 FOR 1 MONTH
     Route: 042
     Dates: start: 20160915
  10. AMPYRA [Suspect]
     Active Substance: DALFAMPRIDINE
     Dosage: 10 MG, EVERY 12 HRS
     Route: 048
     Dates: start: 201608
  11. AMPYRA [Suspect]
     Active Substance: DALFAMPRIDINE
     Dosage: 10 MILLIGRAM, BID
     Route: 065
  12. AMPYRA [Suspect]
     Active Substance: DALFAMPRIDINE
     Dosage: 10 MILLIGRAM, BID
     Route: 065
  13. BOTOX [Concomitant]
     Active Substance: ONABOTULINUMTOXINA
     Indication: PRODUCT USED FOR UNKNOWN INDICATION
     Dosage: UNK
     Route: 065

REACTIONS (8)
  - Mobility decreased [Not Recovered/Not Resolved]
  - Musculoskeletal disorder [Recovered/Resolved]
  - Fall [Not Recovered/Not Resolved]
  - Disturbance in attention [Unknown]
  - Multiple sclerosis [Recovered/Resolved]
  - Extra dose administered [Unknown]
  - Dysgraphia [Unknown]
  - Therapy cessation [Unknown]

NARRATIVE: CASE EVENT DATE: 20191010
